FAERS Safety Report 8236262-2 (Version None)
Quarter: 2012Q1

REPORT INFORMATION
  Report Type: 
  Country: None (occurrence: None)
  Receive Date: 20120326
  Receipt Date: 20120326
  Transmission Date: 20120608
  Serious: No
  Sender: FDA-Public Use
  Company Number: None

PATIENT
  Age: 38 Year
  Sex: Female
  Weight: 50.3493 kg

DRUGS (1)
  1. LEVOXYL [Suspect]
     Indication: HYPOTHYROIDISM
     Dosage: 25MCG QD BY MOUTH  12/17 - 2/22/2012
     Route: 048

REACTIONS (4)
  - VOMITING [None]
  - PRODUCT SUBSTITUTION ISSUE [None]
  - NAUSEA [None]
  - HEART RATE INCREASED [None]
